FAERS Safety Report 13772604 (Version 2)
Quarter: 2017Q3

REPORT INFORMATION
  Report Type: Spontaneous
  Country: US (occurrence: US)
  Receive Date: 20170720
  Receipt Date: 20170728
  Transmission Date: 20171127
  Serious: Yes (Hospitalization)
  Sender: FDA-Public Use
  Company Number: US-JNJFOC-20170713427

PATIENT
  Sex: Female

DRUGS (2)
  1. XARELTO [Suspect]
     Active Substance: RIVAROXABAN
     Indication: ATRIAL FIBRILLATION
     Dosage: DRUG STARTED ROUGHLY ABOUT 1 OR 2 YEARS PRIOR TO THE REPORT
     Route: 048
     Dates: end: 201706
  2. XARELTO [Suspect]
     Active Substance: RIVAROXABAN
     Indication: CEREBROVASCULAR ACCIDENT PROPHYLAXIS
     Dosage: DRUG STARTED ROUGHLY ABOUT 1 OR 2 YEARS PRIOR TO THE REPORT
     Route: 048
     Dates: end: 201706

REACTIONS (2)
  - Device malfunction [Unknown]
  - Coronary artery occlusion [Recovered/Resolved]

NARRATIVE: CASE EVENT DATE: 2017
